FAERS Safety Report 13488939 (Version 1)
Quarter: 2017Q2

REPORT INFORMATION
  Report Type: Report from Study
  Country: US (occurrence: US)
  Receive Date: 20170427
  Receipt Date: 20170427
  Transmission Date: 20170830
  Serious: Yes (Hospitalization)
  Sender: FDA-Public Use
  Company Number: US-PFIZER INC-2017178451

PATIENT
  Age: 22 Year
  Sex: Female

DRUGS (46)
  1. SOLU-MEDROL [Suspect]
     Active Substance: METHYLPREDNISOLONE SODIUM SUCCINATE
     Indication: LUPUS NEPHRITIS
     Dosage: 50 MG, UNK
     Route: 042
     Dates: start: 20160825
  2. RITUXIMAB [Suspect]
     Active Substance: RITUXIMAB
     Dosage: UNK
  3. PREDNISONE. [Suspect]
     Active Substance: PREDNISONE
     Dosage: 30 UNIT NOT REPORTED
     Route: 042
     Dates: start: 20160909, end: 20161013
  4. PREDNISONE. [Suspect]
     Active Substance: PREDNISONE
     Dosage: 25 UNIT NOT REPORTED
     Route: 042
     Dates: start: 20161014, end: 20161021
  5. BENADRYL ALLERGY [Concomitant]
     Active Substance: DIPHENHYDRAMINE HYDROCHLORIDE
     Dosage: 50 MG, 1X/DAY
     Route: 048
     Dates: start: 20160908, end: 20160908
  6. BACTRIM [Concomitant]
     Active Substance: SULFAMETHOXAZOLE\TRIMETHOPRIM
     Indication: PROPHYLAXIS
     Dosage: 800-160 (3 IN 1 WK)
     Route: 048
     Dates: start: 20160825, end: 20170208
  7. LISINOPRIL + HIDROCLOROTIAZIDA [Concomitant]
     Active Substance: HYDROCHLOROTHIAZIDE\LISINOPRIL
  8. RITUXIMAB [Suspect]
     Active Substance: RITUXIMAB
     Dosage: UNK
     Route: 042
     Dates: start: 20160825, end: 20160825
  9. PREDNISONE. [Suspect]
     Active Substance: PREDNISONE
     Indication: LUPUS NEPHRITIS
     Dosage: 40 UNIT NOT REPORTED
     Route: 042
     Dates: start: 20160826, end: 20160908
  10. PREDNISONE. [Suspect]
     Active Substance: PREDNISONE
     Dosage: 20 UNIT NOT REPORTED
     Route: 042
     Dates: start: 20161022, end: 20161027
  11. PREDNISONE. [Suspect]
     Active Substance: PREDNISONE
     Dosage: 10 UNIT NOT REPORTED
     Route: 042
     Dates: start: 20161209
  12. TYLENOL [Concomitant]
     Active Substance: ACETAMINOPHEN
     Indication: PROPHYLAXIS
     Dosage: 650 MG, 1X/DAY
     Route: 048
     Dates: start: 20160825, end: 20160825
  13. HYDROCODONE [Concomitant]
     Active Substance: HYDROCODONE
  14. RITUXIMAB [Suspect]
     Active Substance: RITUXIMAB
     Dosage: UNK
     Route: 042
     Dates: start: 20160908, end: 20160908
  15. PREDNISONE. [Suspect]
     Active Substance: PREDNISONE
     Dosage: 12.5 UNIT NOT REPORTED
     Route: 042
     Dates: start: 20161110, end: 20161116
  16. ZOFRAN [Concomitant]
     Active Substance: ONDANSETRON HYDROCHLORIDE
     Indication: NAUSEA
     Dosage: 8 MG, 3X/DAY
     Route: 048
     Dates: start: 20160909, end: 20160911
  17. DIPHENHYDRAMINE. [Concomitant]
     Active Substance: DIPHENHYDRAMINE
     Dosage: 50 MG, UNK
     Dates: start: 20160825
  18. BENADRYL ALLERGY [Concomitant]
     Active Substance: DIPHENHYDRAMINE HYDROCHLORIDE
     Indication: PROPHYLAXIS
     Dosage: 50 MG, 1X/DAY
     Route: 048
     Dates: start: 20160825, end: 20160825
  19. CALCIUM CARBONATE AND VITAMIN D [Concomitant]
     Active Substance: CALCIUM CARBONATE\VITAMIN D
  20. RITUXIMAB [Suspect]
     Active Substance: RITUXIMAB
     Indication: LUPUS NEPHRITIS
     Dosage: UNK
     Route: 042
     Dates: start: 20160825, end: 20160825
  21. RITUXIMAB [Suspect]
     Active Substance: RITUXIMAB
     Dosage: UNK
     Route: 042
     Dates: start: 20160908, end: 20160908
  22. PREDNISONE. [Suspect]
     Active Substance: PREDNISONE
     Dosage: 17.5 UNIT NOT REPORTED
     Route: 042
     Dates: start: 20161028, end: 20161103
  23. PREDNISONE. [Suspect]
     Active Substance: PREDNISONE
     Dosage: 10 UNIT NOT REPORTED
     Route: 042
     Dates: start: 20161117, end: 20161201
  24. PREDNISONE. [Suspect]
     Active Substance: PREDNISONE
     Dosage: 5 UNIT NOT REPORTED
     Route: 042
     Dates: start: 20161202, end: 20161208
  25. IMPLANON [Concomitant]
     Active Substance: ETONOGESTREL
     Dosage: 68 MG, EVERY 3 YEARS
     Route: 059
     Dates: start: 20141028
  26. TUMS /00193601/ [Concomitant]
     Active Substance: CALCIUM CARBONATE\MAGNESIUM CARBONATE\MAGNESIUM TRISILICATE
     Indication: DYSPEPSIA
     Dosage: 2 IU, AS NEEDED
     Route: 048
     Dates: start: 20170301, end: 20170316
  27. RITUXIMAB [Suspect]
     Active Substance: RITUXIMAB
     Dosage: UNK
     Route: 042
     Dates: start: 20160825, end: 20160825
  28. RITUXIMAB [Suspect]
     Active Substance: RITUXIMAB
     Dosage: UNK
     Route: 042
     Dates: start: 20160825, end: 20160825
  29. RITUXIMAB [Suspect]
     Active Substance: RITUXIMAB
     Dosage: UNK
     Route: 042
     Dates: start: 20160825, end: 20160825
  30. RITUXIMAB [Suspect]
     Active Substance: RITUXIMAB
     Dosage: UNK
     Route: 042
     Dates: start: 20160908, end: 20160908
  31. CYCLOPHOSPHAMIDE. [Suspect]
     Active Substance: CYCLOPHOSPHAMIDE
     Dosage: 500 MG, UNK
     Route: 042
     Dates: start: 20160908, end: 20160908
  32. ACETAMINOPHEN. [Concomitant]
     Active Substance: ACETAMINOPHEN
     Dosage: 650 MG, UNK
     Dates: start: 20160908
  33. VALTREX [Concomitant]
     Active Substance: VALACYCLOVIR HYDROCHLORIDE
     Indication: RASH
     Dosage: 2000 MG,2 IN 1 TRIMESTER
     Route: 048
     Dates: start: 20160923, end: 20160923
  34. CYCLOPHOSPHAMIDE. [Suspect]
     Active Substance: CYCLOPHOSPHAMIDE
     Dosage: UNK
  35. TYLENOL [Concomitant]
     Active Substance: ACETAMINOPHEN
     Dosage: 650 MG, 1X/DAY
     Route: 048
     Dates: start: 20160908, end: 20160908
  36. MULTIVITAMIN /00097801/ [Concomitant]
     Active Substance: VITAMINS
  37. SOLU-MEDROL [Suspect]
     Active Substance: METHYLPREDNISOLONE SODIUM SUCCINATE
     Dosage: 100 MG, UNK
     Route: 042
     Dates: start: 20160908
  38. RITUXIMAB [Suspect]
     Active Substance: RITUXIMAB
     Dosage: UNK
     Route: 042
     Dates: start: 20160908, end: 20160908
  39. CYCLOPHOSPHAMIDE. [Suspect]
     Active Substance: CYCLOPHOSPHAMIDE
     Dosage: 750 MG, UNK
     Route: 042
     Dates: start: 20160825, end: 20160825
  40. RITUXIMAB [Suspect]
     Active Substance: RITUXIMAB
     Dosage: UNK
     Route: 042
     Dates: start: 20160825, end: 20160825
  41. RITUXIMAB [Suspect]
     Active Substance: RITUXIMAB
     Dosage: UNK
     Route: 042
     Dates: start: 20160825, end: 20160825
  42. RITUXIMAB [Suspect]
     Active Substance: RITUXIMAB
     Dosage: UNK
     Route: 042
     Dates: start: 20160825, end: 20160825
  43. PREDNISONE. [Suspect]
     Active Substance: PREDNISONE
     Dosage: 15 UNIT NOT REPORTED
     Route: 042
     Dates: start: 20161104, end: 20161109
  44. ACETAMINOPHEN. [Concomitant]
     Active Substance: ACETAMINOPHEN
     Dosage: 650 MG, UNK
     Dates: start: 20160825
  45. PLAQUENIL /00072602/ [Concomitant]
     Active Substance: HYDROXYCHLOROQUINE DIPHOSPHATE
     Indication: SYSTEMIC LUPUS ERYTHEMATOSUS
     Dosage: 400 MG, 2X/DAY
     Route: 048
     Dates: start: 20160422
  46. TRAMADOL. [Concomitant]
     Active Substance: TRAMADOL
     Indication: PAIN
     Dosage: 50 MG, AS NEEDED
     Route: 048
     Dates: start: 20170107

REACTIONS (1)
  - Anaemia [Not Recovered/Not Resolved]

NARRATIVE: CASE EVENT DATE: 20170331
